FAERS Safety Report 8851051 (Version 2)
Quarter: 2012Q4

REPORT INFORMATION
  Report Type: 
  Country: US (occurrence: US)
  Receive Date: 20121019
  Receipt Date: 20121106
  Transmission Date: 20130627
  Serious: Yes (Death, Hospitalization)
  Sender: FDA-Public Use
  Company Number: US-BRISTOL-MYERS SQUIBB COMPANY-17029836

PATIENT
  Age: 82 Year
  Sex: Female

DRUGS (9)
  1. ORENCIA [Suspect]
     Indication: RHEUMATOID ARTHRITIS
     Dosage: 27 infusions.last infusion:06AUG2012.
     Route: 042
     Dates: start: 20100212
  2. METOPROLOL [Concomitant]
  3. VITAMIN D [Concomitant]
  4. TEMAZEPAM [Concomitant]
  5. WARFARIN [Concomitant]
  6. POLYETHYLENE GLYCOL [Concomitant]
  7. CLOBETASOL [Concomitant]
  8. TRAMADOL [Concomitant]
  9. ACETAMINOPHEN [Concomitant]

REACTIONS (3)
  - Gastrointestinal carcinoma [Fatal]
  - Bacteraemia [Fatal]
  - Systemic candida [Fatal]
